FAERS Safety Report 8898138 (Version 1)
Quarter: 2012Q4

REPORT INFORMATION
  Report Type: 
  Country: US (occurrence: US)
  Receive Date: 20121108
  Receipt Date: 20121108
  Transmission Date: 20130627
  Serious: No
  Sender: FDA-Public Use
  Company Number: US-AMGEN-USASP2012030091

PATIENT
  Sex: Male
  Weight: 119.73 kg

DRUGS (4)
  1. ENBREL [Suspect]
     Indication: PRODUCT USED FOR UNKNOWN INDICATION
     Dosage: 50 mg, qwk
     Route: 058
  2. WARFARIN [Concomitant]
     Dosage: 1 mg, UNK
  3. LISINOPRIL [Concomitant]
     Dosage: 10 mg, UNK
  4. LASIX                              /00032601/ [Concomitant]
     Dosage: 20 mg, UNK

REACTIONS (2)
  - Increased upper airway secretion [Unknown]
  - Cough [Unknown]
